FAERS Safety Report 10188582 (Version 1)
Quarter: 2014Q2

REPORT INFORMATION
  Report Type: Spontaneous
  Country: US (occurrence: US)
  Receive Date: 20140522
  Receipt Date: 20140522
  Transmission Date: 20141212
  Serious: No
  Sender: FDA-Public Use
  Company Number: US-SA-2014SA033491

PATIENT
  Sex: Male

DRUGS (4)
  1. LANTUS [Suspect]
     Indication: DIABETES MELLITUS
     Route: 065
  2. IRON [Concomitant]
     Dosage: INFUSION
  3. CELEBREX [Concomitant]
  4. HUMALOG [Concomitant]

REACTIONS (1)
  - Abdominal discomfort [Unknown]
